FAERS Safety Report 25261294 (Version 1)
Quarter: 2025Q2

REPORT INFORMATION
  Report Type: Spontaneous
  Country: US (occurrence: US)
  Receive Date: 20250501
  Receipt Date: 20250501
  Transmission Date: 20250717
  Serious: Yes (Hospitalization)
  Sender: JOHNSON AND JOHNSON
  Company Number: US-JNJFOC-20250337752

PATIENT
  Sex: Female

DRUGS (1)
  1. CARVYKTI [Suspect]
     Active Substance: CILTACABTAGENE AUTOLEUCEL
     Indication: Product used for unknown indication
     Route: 065

REACTIONS (6)
  - Nasopharyngitis [Unknown]
  - White blood cell count decreased [Unknown]
  - Headache [Unknown]
  - Viral infection [Unknown]
  - Gastroenteritis viral [Unknown]
  - Illness [Unknown]
